FAERS Safety Report 10433162 (Version 1)
Quarter: 2014Q3

REPORT INFORMATION
  Report Type: Spontaneous
  Country: ES (occurrence: ES)
  Receive Date: 20140905
  Receipt Date: 20140905
  Transmission Date: 20150326
  Serious: Yes (Other)
  Sender: FDA-Public Use
  Company Number: ES-ASTRAZENECA-2014SE65785

PATIENT
  Sex: Male

DRUGS (2)
  1. DEZACOR [Concomitant]
     Active Substance: DEFLAZACORT
     Indication: ARTHRITIS REACTIVE
  2. NEXIUM [Suspect]
     Active Substance: ESOMEPRAZOLE MAGNESIUM
     Indication: GASTROOESOPHAGEAL REFLUX DISEASE
     Route: 048

REACTIONS (5)
  - Oral discomfort [Unknown]
  - Muscular weakness [Unknown]
  - Joint swelling [Unknown]
  - Glossodynia [Unknown]
  - Arthralgia [Unknown]
